FAERS Safety Report 5741411-1 (Version None)
Quarter: 2008Q2

REPORT INFORMATION
  Report Type: 
  Country: None (occurrence: None)
  Receive Date: 20080514
  Receipt Date: 20080430
  Transmission Date: 20081010
  Serious: Yes (Other)
  Sender: FDA-Public Use
  Company Number: 230051M08CAN

PATIENT
  Sex: Female

DRUGS (5)
  1. REBIF [Suspect]
     Indication: RELAPSING-REMITTING MULTIPLE SCLEROSIS
     Dosage: 44 MCG, 3 IN 1 WEEKS, SUBCUTANEOUS, 22 MCG
     Route: 058
     Dates: start: 20020101, end: 20080401
  2. REBIF [Suspect]
     Indication: RELAPSING-REMITTING MULTIPLE SCLEROSIS
     Dosage: 44 MCG, 3 IN 1 WEEKS, SUBCUTANEOUS, 22 MCG
     Route: 058
     Dates: start: 20030101
  3. METFORMIN HCL [Concomitant]
  4. ENERGIX [Concomitant]
  5. LANSOPRAZOLE [Concomitant]

REACTIONS (4)
  - BURNING SENSATION MUCOSAL [None]
  - DRY SKIN [None]
  - STEVENS-JOHNSON SYNDROME [None]
  - THROAT IRRITATION [None]
